FAERS Safety Report 6234916-0 (Version None)
Quarter: 2009Q2

REPORT INFORMATION
  Report Type: 
  Country: None (occurrence: None)
  Receive Date: 20090618
  Receipt Date: 20090611
  Transmission Date: 20091009
  Serious: Yes (Other)
  Sender: FDA-Public Use
  Company Number: A0790410A

PATIENT
  Age: 70 Year
  Sex: Female

DRUGS (16)
  1. VENTOLIN [Suspect]
     Indication: ASTHMA
     Dosage: 2PUFF FOUR TIMES PER DAY
     Route: 055
     Dates: start: 20090601
  2. PULMICORT-100 [Concomitant]
  3. SINGULAIR [Concomitant]
  4. RANITIDINE [Concomitant]
  5. ZOLOFT [Concomitant]
  6. OMEPRAZOLE [Concomitant]
  7. ENBREL [Concomitant]
  8. MORPHINE SULFATE [Concomitant]
  9. PERCOCET [Concomitant]
  10. XANAX [Concomitant]
  11. FIORICET [Concomitant]
  12. PREDNISONE [Concomitant]
  13. FOLIC ACID [Concomitant]
  14. CENTRUM SILVER [Concomitant]
  15. CALCIUM PLUS D [Concomitant]
  16. PROVENTIL-HFA [Concomitant]
     Route: 045
     Dates: end: 20090101

REACTIONS (6)
  - ASTHMA [None]
  - DRY MOUTH [None]
  - ORAL DISCOMFORT [None]
  - STOMATITIS [None]
  - TONGUE DISCOLOURATION [None]
  - TONGUE DISORDER [None]
